FAERS Safety Report 17453848 (Version 3)
Quarter: 2020Q1

REPORT INFORMATION
  Report Type: Spontaneous
  Country: US (occurrence: US)
  Receive Date: 20200224
  Receipt Date: 20200330
  Transmission Date: 20200409
  Serious: Yes (Hospitalization, Other)
  Sender: FDA-Public Use
  Company Number: US-ACTELION-A-NJ2020-201994

PATIENT
  Age: 52 Year
  Sex: Female

DRUGS (1)
  1. OPSUMIT [Suspect]
     Active Substance: MACITENTAN
     Indication: PULMONARY ARTERIAL HYPERTENSION
     Dosage: 10 MG, QD
     Route: 048
     Dates: start: 20140407

REACTIONS (6)
  - Myasthenia gravis [Unknown]
  - Product dose omission [Recovered/Resolved]
  - White blood cell count decreased [Unknown]
  - Diplopia [Unknown]
  - Middle ear effusion [Unknown]
  - Malaise [Unknown]

NARRATIVE: CASE EVENT DATE: 20200126
